FAERS Safety Report 10524011 (Version 1)
Quarter: 2014Q4

REPORT INFORMATION
  Report Type: Spontaneous
  Country: US (occurrence: None)
  Receive Date: 20141015
  Receipt Date: 20141015
  Transmission Date: 20150528
  Serious: Yes (Hospitalization)
  Sender: FDA-Public Use
  Company Number: None

PATIENT
  Age: 51 Year
  Sex: Male
  Weight: 69.8 kg

DRUGS (2)
  1. ERBITUX [Suspect]
     Active Substance: CETUXIMAB
  2. TAXOTERE [Suspect]
     Active Substance: DOCETAXEL

REACTIONS (8)
  - Drug dose omission [None]
  - Impetigo [None]
  - Radiation skin injury [None]
  - Streptococcal infection [None]
  - Dermatitis acneiform [None]
  - Staphylococcal infection [None]
  - Skin tightness [None]
  - Pyoderma [None]

NARRATIVE: CASE EVENT DATE: 20140826
